FAERS Safety Report 16913356 (Version 1)
Quarter: 2019Q4

REPORT INFORMATION
  Report Type: Spontaneous
  Country: US (occurrence: US)
  Receive Date: 20191014
  Receipt Date: 20191014
  Transmission Date: 20200122
  Serious: Yes (Other)
  Sender: FDA-Public Use
  Company Number: US-ACCORD-156986

PATIENT
  Age: 57 Year
  Sex: Male

DRUGS (1)
  1. CAPECITABINE. [Suspect]
     Active Substance: CAPECITABINE
     Indication: NEOPLASM OF THYMUS
     Dosage: TWICE DAILY, FOR 14DAYS ON A 21-DAY CYCLE

REACTIONS (5)
  - Off label use [Unknown]
  - Acute kidney injury [Unknown]
  - Condition aggravated [Unknown]
  - Acute hepatic failure [Unknown]
  - Hepatorenal syndrome [Unknown]
